FAERS Safety Report 6846022-2 (Version None)
Quarter: 2010Q3

REPORT INFORMATION
  Report Type: 
  Country: None (occurrence: None)
  Receive Date: 20100715
  Receipt Date: 20070904
  Transmission Date: 20110219
  Serious: No
  Sender: FDA-Public Use
  Company Number: US-PFIZER INC-2007074335

PATIENT
  Sex: Male
  Weight: 104.5 kg

DRUGS (6)
  1. CHANTIX [Suspect]
     Indication: SMOKING CESSATION THERAPY
     Dates: start: 20070801
  2. ALLOPURINOL [Concomitant]
  3. ATENOLOL [Concomitant]
  4. SIMVASTATIN [Concomitant]
  5. PLAVIX [Concomitant]
  6. TAMSULOSIN HYDROCHLORIDE [Concomitant]

REACTIONS (1)
  - FATIGUE [None]
